FAERS Safety Report 9481934 (Version 1)
Quarter: 2013Q3

REPORT INFORMATION
  Report Type: Spontaneous
  Country: US (occurrence: None)
  Receive Date: 20130823
  Receipt Date: 20130823
  Transmission Date: 20140515
  Serious: Yes (Life-Threatening, Other)
  Sender: FDA-Public Use
  Company Number: 1850065

PATIENT
  Age: 46 Year
  Sex: Female
  Weight: 59.09 kg

DRUGS (1)
  1. HYDROMORPHONE HYDROCHLORIDE [Suspect]
     Indication: HYSTERECTOMY
     Dates: start: 20130806, end: 20130806

REACTIONS (2)
  - Respiratory arrest [None]
  - Unresponsive to stimuli [None]
